FAERS Safety Report 6887632-6 (Version None)
Quarter: 2010Q3

REPORT INFORMATION
  Report Type: 
  Country: None (occurrence: None)
  Receive Date: 20100730
  Receipt Date: 20100621
  Transmission Date: 20110219
  Serious: No
  Sender: FDA-Public Use
  Company Number: US-BAYER-201026558NA

PATIENT
  Age: 73 Year
  Sex: Female
  Weight: 99 kg

DRUGS (4)
  1. ULTRAVIST 370 [Suspect]
     Indication: COMPUTERISED TOMOGRAM
     Dosage: TOTAL DAILY DOSE: 80 ML  UNIT DOSE: 500 ML
     Route: 042
     Dates: start: 20100621, end: 20100621
  2. ULTRAVIST 370 [Suspect]
     Dosage: ULTRAVIST GIVEN AS ORAL CONTRAST
     Route: 048
     Dates: start: 20100621, end: 20100621
  3. BENICAR [Concomitant]
  4. NORVASC [Concomitant]

REACTIONS (2)
  - PRURITUS [None]
  - URTICARIA [None]
